FAERS Safety Report 11969227 (Version 1)
Quarter: 2016Q1

REPORT INFORMATION
  Report Type: Spontaneous
  Country: US (occurrence: None)
  Receive Date: 20160127
  Receipt Date: 20160127
  Transmission Date: 20160526
  Serious: Yes (Disabling, Other)
  Sender: FDA-Public Use
  Company Number: None

PATIENT
  Age: 32 Year
  Sex: Female
  Weight: 68.04 kg

DRUGS (4)
  1. LUPRON DEPOT [Suspect]
     Active Substance: LEUPROLIDE ACETATE
     Indication: UTERINE LEIOMYOMA
     Dosage: 11.25MG LIQUID DOSAGE MONTHLY BUTTOCKS
  2. VITAMIN D [Concomitant]
     Active Substance: CHOLECALCIFEROL
  3. IRON PILLS [Concomitant]
     Active Substance: IRON
  4. VITAMIN B12 [Concomitant]
     Active Substance: CYANOCOBALAMIN

REACTIONS (6)
  - Dizziness [None]
  - Fatigue [None]
  - Depressed mood [None]
  - Hot flush [None]
  - Sluggishness [None]
  - Confusional state [None]

NARRATIVE: CASE EVENT DATE: 20080921
